FAERS Safety Report 21335056 (Version 1)
Quarter: 2022Q3

REPORT INFORMATION
  Report Type: Spontaneous
  Country: US (occurrence: None)
  Receive Date: 20220914
  Receipt Date: 20220914
  Transmission Date: 20221026
  Serious: No
  Sender: FDA-Public Use
  Company Number: None

PATIENT
  Age: 67 Year
  Sex: Male
  Weight: 98.43 kg

DRUGS (9)
  1. ABIRATERONE [Suspect]
     Active Substance: ABIRATERONE
     Indication: Prostate cancer
     Dosage: 1000MG ONCE DAILY ORAL?
     Route: 048
     Dates: start: 20220223
  2. ABIRATERONE [Suspect]
     Active Substance: ABIRATERONE
     Dosage: 5MG ONCE DAILY ORAL
     Route: 048
     Dates: start: 20220223
  3. ABIRATERONE [Suspect]
     Active Substance: ABIRATERONE
  4. ALLOPURINOL [Concomitant]
     Active Substance: ALLOPURINOL
  5. FISH OIL [Concomitant]
     Active Substance: FISH OIL
  6. ELIQUIS [Concomitant]
     Active Substance: APIXABAN
  7. GEMBFIBROZIL [Concomitant]
  8. OYSTER SHELL [Concomitant]
     Active Substance: OSTREA EDULIS SHELL
  9. VITAMIN D [Concomitant]
     Active Substance: VITAMIN D NOS

REACTIONS (1)
  - Disease progression [None]
